FAERS Safety Report 13942734 (Version 4)
Quarter: 2017Q4

REPORT INFORMATION
  Report Type: Spontaneous
  Country: US (occurrence: US)
  Receive Date: 20170906
  Receipt Date: 20171128
  Transmission Date: 20180320
  Serious: Yes (Hospitalization)
  Sender: FDA-Public Use
  Company Number: US-LUNDBECK-DKLU2036237

PATIENT
  Age: 85 Year
  Sex: Male

DRUGS (4)
  1. NORTHERA [Suspect]
     Active Substance: DROXIDOPA
     Indication: SINUS NODE DYSFUNCTION
  2. NORTHERA [Suspect]
     Active Substance: DROXIDOPA
     Indication: ORTHOSTATIC HYPOTENSION
     Route: 048
     Dates: start: 20161122
  3. NORTHERA [Suspect]
     Active Substance: DROXIDOPA
     Indication: ORTHOSTATIC HYPOTENSION
     Route: 048
     Dates: start: 201501
  4. NORTHERA [Suspect]
     Active Substance: DROXIDOPA
     Indication: DIZZINESS

REACTIONS (9)
  - Blood sodium decreased [Unknown]
  - Cholecystitis infective [Unknown]
  - Hypertension [Unknown]
  - Fall [Unknown]
  - Malaise [Unknown]
  - Incorrect dose administered [Unknown]
  - Hypoxia [Unknown]
  - Hypophagia [Unknown]
  - Lethargy [Unknown]

NARRATIVE: CASE EVENT DATE: 20170826
